FAERS Safety Report 7080598-8 (Version None)
Quarter: 2010Q4

REPORT INFORMATION
  Report Type: 
  Country: None (occurrence: None)
  Receive Date: 20101025
  Receipt Date: 20101018
  Transmission Date: 20110411
  Serious: Yes (Other)
  Sender: FDA-Public Use
  Company Number: A0887341A

PATIENT
  Sex: Female

DRUGS (1)
  1. WHITE SOFT PARAFFIN (FORMULATION UNKNOWN) VANILLA (WHITE SOFT PARAFFIN [Suspect]
     Dosage: TOPICAL
     Route: 061

REACTIONS (1)
  - DEPENDENCE [None]
